FAERS Safety Report 6328722-6 (Version None)
Quarter: 2009Q3

REPORT INFORMATION
  Report Type: 
  Country: None (occurrence: None)
  Receive Date: 20090826
  Receipt Date: 20090825
  Transmission Date: 20100115
  Serious: No
  Sender: FDA-Public Use
  Company Number: US-B.I. PHARMACEUTICALS,INC./RIDGEFIELD-2009-BP-05974BP

PATIENT
  Sex: Female

DRUGS (7)
  1. SPIRIVA [Suspect]
     Indication: HYPOXIA
     Dosage: 18 MCG
     Route: 055
     Dates: start: 20081226, end: 20090101
  2. SPIRIVA [Suspect]
     Indication: LUNG DISORDER
  3. SPIRIVA [Suspect]
     Indication: BRONCHIAL HYPERREACTIVITY
  4. LIPITOR [Concomitant]
     Indication: BLOOD CHOLESTEROL INCREASED
  5. DIOVAN [Concomitant]
     Indication: HYPERTENSION
  6. SYNTHROID [Concomitant]
     Indication: HYPOTHYROIDISM
  7. FOSAMAX [Concomitant]

REACTIONS (2)
  - ANXIETY [None]
  - PALPITATIONS [None]
